FAERS Safety Report 9511968 (Version 4)
Quarter: 2013Q4

REPORT INFORMATION
  Report Type: Report from Study
  Country: JP (occurrence: JP)
  Receive Date: 20130910
  Receipt Date: 20131001
  Transmission Date: 20140711
  Serious: Yes (Hospitalization)
  Sender: FDA-Public Use
  Company Number: JP-PFIZER INC-2013254823

PATIENT
  Age: 64 Year
  Sex: Male
  Weight: 69.7 kg

DRUGS (23)
  1. CRIZOTINIB [Suspect]
     Indication: NON-SMALL CELL LUNG CANCER
     Dosage: 250 MG, 2X/DAY
     Route: 048
     Dates: start: 20130801, end: 20130813
  2. CRIZOTINIB [Suspect]
     Dosage: 200 MG, 2X/DAY
     Route: 048
     Dates: start: 20130814, end: 20130819
  3. CALONAL [Suspect]
     Dosage: 0.5 G, 3X/DAY
     Route: 048
     Dates: start: 20130809, end: 20130813
  4. HYPEN [Concomitant]
     Dosage: 200 MG, 2X/DAY
     Route: 048
     Dates: start: 20130729, end: 20130731
  5. NOVAMIN [Concomitant]
     Dosage: 5 MG, 2X/DAY
     Route: 048
     Dates: start: 20130731, end: 20130731
  6. DEPAS [Concomitant]
     Dosage: 0.5 MG, 1X/DAY
     Route: 048
     Dates: start: 20130729, end: 20130731
  7. OLMETEC [Concomitant]
     Dosage: 40 MG, 1X/DAY
     Route: 048
     Dates: start: 20130729, end: 20130731
  8. CONIEL [Concomitant]
     Dosage: 4 MG, 2X/DAY
     Route: 048
     Dates: start: 20130729, end: 20130731
  9. LIVALO [Concomitant]
     Dosage: 2 MG, 1X/DAY
     Route: 048
     Dates: start: 20130729, end: 20130731
  10. CODEINE PHOSPHATE [Concomitant]
     Dosage: 20 MG, 3X/DAY
     Route: 048
     Dates: start: 20130729, end: 20130731
  11. NEXIUM [Concomitant]
     Dosage: 20 MG, 1X/DAY
     Route: 048
     Dates: start: 20130729, end: 20130731
  12. MAG-LAX [Concomitant]
     Dosage: 330 MG, 3X/DAY
     Route: 048
     Dates: start: 20130729, end: 20130731
  13. DECADRON [Concomitant]
     Dosage: 2 MG, 2X/DAY
     Route: 048
     Dates: start: 20130731, end: 20130731
  14. ONE-ALPHA [Concomitant]
     Dosage: 0.5 UG, 1X/DAY
     Route: 048
     Dates: start: 20130729, end: 20130731
  15. ALINAMIN F [Concomitant]
     Dosage: 50 MG, 1X/DAY
     Route: 048
     Dates: start: 20130729, end: 20130731
  16. PANVITAN [Concomitant]
     Dosage: 1 G, 1X/DAY
     Route: 048
     Dates: start: 20130729, end: 20130731
  17. ASPARA CA [Concomitant]
     Dosage: 400 MG, 3X/DAY
     Route: 048
     Dates: start: 20130729, end: 20130731
  18. ENSURE LIQUID [Concomitant]
     Dosage: 250 ML, 1X/DAY
     Route: 048
     Dates: start: 20130729, end: 20130731
  19. BAYASPIRIN [Concomitant]
     Dosage: 100 MG, 1X/DAY
     Route: 048
     Dates: start: 20130729, end: 20130731
  20. PLAVIX [Concomitant]
     Dosage: 75 MG, 1X/DAY
     Route: 048
     Dates: start: 20130729, end: 20130731
  21. AMARYL [Concomitant]
     Dosage: 1 MG, 1X/DAY
     Route: 048
     Dates: start: 20130729, end: 20130731
  22. EQUA [Concomitant]
     Dosage: 50 MG, 2X/DAY
     Route: 048
     Dates: start: 20130729, end: 20130731
  23. LAXOBERON [Concomitant]
     Dosage: 10 ML, AS NEEDED
     Route: 048
     Dates: start: 20130729, end: 20130731

REACTIONS (1)
  - Erythema multiforme [Recovering/Resolving]
